FAERS Safety Report 5692355-5 (Version None)
Quarter: 2008Q2

REPORT INFORMATION
  Report Type: 
  Country: None (occurrence: None)
  Receive Date: 20080402
  Receipt Date: 20080326
  Transmission Date: 20081010
  Serious: Yes (Other)
  Sender: FDA-Public Use
  Company Number: A0717621A

PATIENT
  Age: 62 Year
  Sex: Female

DRUGS (5)
  1. TYKERB [Suspect]
     Dosage: 1250MG PER DAY
     Route: 048
     Dates: start: 20070430
  2. XELODA [Suspect]
     Dosage: 1000MG TWICE PER DAY
     Dates: start: 20070430
  3. RED YEAST RICE [Suspect]
     Indication: BLOOD CHOLESTEROL INCREASED
     Dosage: 1200MG TWICE PER DAY
     Dates: start: 20070925, end: 20071102
  4. HERCEPTIN [Concomitant]
  5. NAVELBINE [Concomitant]

REACTIONS (6)
  - CONJUNCTIVITIS INFECTIVE [None]
  - DRUG INEFFECTIVE [None]
  - DRUG INTERACTION [None]
  - HEPATIC CANCER METASTATIC [None]
  - METASTASES TO CHEST WALL [None]
  - VULVOVAGINAL MYCOTIC INFECTION [None]
